FAERS Safety Report 18833988 (Version 1)
Quarter: 2021Q1

REPORT INFORMATION
  Report Type: Spontaneous
  Country: US (occurrence: US)
  Receive Date: 20210203
  Receipt Date: 20210203
  Transmission Date: 20210419
  Serious: Yes (Life-Threatening, Hospitalization)
  Sender: FDA-Public Use
  Company Number: None

PATIENT
  Age: 28 Year
  Sex: Female
  Weight: 52.3 kg

DRUGS (1)
  1. WARFARIN [Suspect]
     Active Substance: WARFARIN
     Indication: DEEP VEIN THROMBOSIS
     Route: 048

REACTIONS (6)
  - Headache [None]
  - Muscular weakness [None]
  - Hemiparesis [None]
  - Subdural haematoma [None]
  - Intracranial mass [None]
  - Crying [None]

NARRATIVE: CASE EVENT DATE: 20210202
